FAERS Safety Report 11557912 (Version 1)
Quarter: 2015Q3

REPORT INFORMATION
  Report Type: Spontaneous
  Country: US (occurrence: None)
  Receive Date: 20150924
  Receipt Date: 20150924
  Transmission Date: 20151125
  Serious: Yes (Other)
  Sender: FDA-Public Use
  Company Number: PD-200

PATIENT

DRUGS (1)
  1. HYSTINGLA ER (HYDROCODONE EXTENDED RELEASE) [Suspect]
     Active Substance: HYDROCODONE BITARTRATE
     Indication: PAIN
     Dosage: 20 MG-80 MG

REACTIONS (3)
  - Drug abuse [None]
  - Overdose [None]
  - Multi-organ disorder [None]
